FAERS Safety Report 23372755 (Version 1)
Quarter: 2024Q1

REPORT INFORMATION
  Report Type: Spontaneous
  Country: US (occurrence: US)
  Receive Date: 20240105
  Receipt Date: 20240105
  Transmission Date: 20240409
  Serious: Yes (Other)
  Sender: FDA-Public Use
  Company Number: US-COOPERSURGICAL, INC.-US-2023CPS000701

PATIENT
  Age: 21 Year
  Sex: Female
  Weight: 112.93 kg

DRUGS (3)
  1. PARAGARD T 380A [Suspect]
     Active Substance: COPPER
     Indication: Contraception
     Dosage: UNK
     Route: 015
     Dates: start: 20221115, end: 20230320
  2. VISTARIL [Concomitant]
     Active Substance: HYDROXYZINE PAMOATE
     Indication: Product used for unknown indication
     Dosage: UNK
     Route: 065
  3. IBUPROFEN [Concomitant]
     Active Substance: IBUPROFEN
     Indication: Product used for unknown indication
     Dosage: UNK
     Route: 065

REACTIONS (7)
  - Embedded device [Recovered/Resolved]
  - Complication of device removal [Recovered/Resolved]
  - Off label use [Unknown]
  - Uterine perforation [Recovered/Resolved]
  - Procedural haemorrhage [Recovered/Resolved]
  - Mycoplasma infection [Unknown]
  - Bacterial vaginosis [Unknown]

NARRATIVE: CASE EVENT DATE: 20221115
